FAERS Safety Report 7370044-9 (Version None)
Quarter: 2011Q1

REPORT INFORMATION
  Report Type: 
  Country: None (occurrence: None)
  Receive Date: 20110323
  Receipt Date: 20110309
  Transmission Date: 20110831
  Serious: Yes (Hospitalization)
  Sender: FDA-Public Use
  Company Number: LT-BAYER-2011-021233

PATIENT
  Age: 80 Year
  Sex: Female
  Weight: 60 kg

DRUGS (5)
  1. METOPROLOL SUCCINATE [Concomitant]
     Route: 048
  2. PLAVIX [Interacting]
     Indication: MYOCARDIAL ISCHAEMIA
     Route: 048
  3. ASPIRIN [Suspect]
     Route: 048
  4. LESCOL [Concomitant]
     Route: 048
  5. ORFARIN [Interacting]
     Indication: MYOCARDIAL ISCHAEMIA
     Dosage: 10 MG, HS
     Route: 048
     Dates: start: 20110101

REACTIONS (3)
  - INTERNATIONAL NORMALISED RATIO INCREASED [None]
  - PROTHROMBIN TIME PROLONGED [None]
  - POTENTIATING DRUG INTERACTION [None]
